FAERS Safety Report 5176523-7 (Version None)
Quarter: 2006Q4

REPORT INFORMATION
  Report Type: 
  Country: None (occurrence: None)
  Receive Date: 20061215
  Receipt Date: 20061207
  Transmission Date: 20070319
  Serious: Yes (Disabling, Other)
  Sender: FDA-Public Use
  Company Number: US-PURDUE-USA_2006_0025902

PATIENT
  Age: 39 Year
  Sex: Male

DRUGS (3)
  1. OXYCONTIN [Suspect]
     Indication: DRUG ABUSER
     Dosage: UNK, UNK
  2. COCAINE [Suspect]
     Indication: DRUG ABUSER
     Dosage: UNK, UNK
  3. ALCOHOL [Suspect]
     Indication: ALCOHOLISM
     Dosage: UNK, UNK

REACTIONS (5)
  - ALCOHOL POISONING [None]
  - HOMICIDE [None]
  - PHYSICAL ASSAULT [None]
  - SUBSTANCE ABUSE [None]
  - THEFT [None]
